FAERS Safety Report 9510079 (Version 1)
Quarter: 2013Q3

REPORT INFORMATION
  Report Type: Spontaneous
  Country: US (occurrence: US)
  Receive Date: 20130909
  Receipt Date: 20130909
  Transmission Date: 20140515
  Serious: Yes (Hospitalization)
  Sender: FDA-Public Use
  Company Number: US-BRISTOL-MYERS SQUIBB COMPANY-17125881

PATIENT
  Age: 50 Year
  Sex: Male
  Weight: 74.83 kg

DRUGS (2)
  1. ABILIFY [Suspect]
     Indication: DEPRESSION
  2. PRISTIQ [Interacting]
     Indication: DEPRESSION
     Dates: start: 2011

REACTIONS (2)
  - Suicide attempt [Unknown]
  - Drug interaction [Unknown]
